FAERS Safety Report 6577419-6 (Version None)
Quarter: 2010Q1

REPORT INFORMATION
  Report Type: 
  Country: None (occurrence: None)
  Receive Date: 20100211
  Receipt Date: 20100204
  Transmission Date: 20100710
  Serious: Yes (Other)
  Sender: FDA-Public Use
  Company Number: BE-BAYER-200942260GPV

PATIENT
  Age: 34 Year
  Sex: Female

DRUGS (6)
  1. BETAFERON [Suspect]
     Indication: MULTIPLE SCLEROSIS
     Dates: start: 20080226, end: 20090927
  2. BETAFERON [Suspect]
     Dates: start: 20100112, end: 20100118
  3. BETAFERON [Suspect]
     Dates: start: 20100119, end: 20100127
  4. BETAFERON [Suspect]
     Dates: start: 20100128
  5. BETAFERON [Suspect]
     Dates: start: 20100130, end: 20100204
  6. VACCINATION FOR MEXICAN FLU [Concomitant]

REACTIONS (7)
  - ANGIOEDEMA [None]
  - DYSPNOEA [None]
  - HYPERHIDROSIS [None]
  - HYPERSENSITIVITY [None]
  - PRURITUS [None]
  - RASH MACULAR [None]
  - SWELLING FACE [None]
